FAERS Safety Report 19179022 (Version 4)
Quarter: 2021Q3

REPORT INFORMATION
  Report Type: Report from Study
  Country: CR (occurrence: CR)
  Receive Date: 20210426
  Receipt Date: 20210830
  Transmission Date: 20211014
  Serious: Yes (Other)
  Sender: FDA-Public Use
  Company Number: NVSC2020CR220038

PATIENT
  Sex: Female

DRUGS (4)
  1. TRAMSET [Suspect]
     Active Substance: ACETAMINOPHEN\TRAMADOL HYDROCHLORIDE
     Indication: ARTHRALGIA
     Dosage: UNK
     Route: 065
  2. SCAPHO [Suspect]
     Active Substance: SECUKINUMAB
     Indication: ANKYLOSING SPONDYLITIS
     Dosage: 150 MG, QMO
     Route: 058
     Dates: start: 20200604
  3. SCAPHO [Suspect]
     Active Substance: SECUKINUMAB
     Dosage: UNK
     Route: 065
     Dates: start: 202008
  4. FLUCONAZOLE. [Suspect]
     Active Substance: FLUCONAZOLE
     Indication: PRODUCT USED FOR UNKNOWN INDICATION
     Dosage: UNK
     Route: 065

REACTIONS (32)
  - Dyspnoea [Unknown]
  - Arthralgia [Not Recovered/Not Resolved]
  - Neck pain [Not Recovered/Not Resolved]
  - Dyspepsia [Unknown]
  - Bronchial disorder [Recovering/Resolving]
  - Polymerase chain reaction positive [Unknown]
  - Oral candidiasis [Not Recovered/Not Resolved]
  - Pain [Not Recovered/Not Resolved]
  - Reflux gastritis [Recovering/Resolving]
  - Hypersensitivity [Unknown]
  - Swelling [Recovering/Resolving]
  - Choking sensation [Recovering/Resolving]
  - Drug-induced liver injury [Unknown]
  - Rotavirus infection [Unknown]
  - Eye pruritus [Recovering/Resolving]
  - Cough [Recovering/Resolving]
  - Nerve compression [Unknown]
  - Joint range of motion decreased [Unknown]
  - Fear [Unknown]
  - Drug hypersensitivity [Unknown]
  - Oral discomfort [Unknown]
  - Inflammation [Unknown]
  - Anxiety [Unknown]
  - C-reactive protein abnormal [Unknown]
  - Rhinitis [Recovering/Resolving]
  - Somnolence [Unknown]
  - Unevaluable event [Unknown]
  - Illness [Unknown]
  - Spinal pain [Not Recovered/Not Resolved]
  - Tendonitis [Unknown]
  - Bursitis [Unknown]
  - Malaise [Unknown]
